FAERS Safety Report 16448781 (Version 1)
Quarter: 2019Q2

REPORT INFORMATION
  Report Type: Spontaneous
  Country: IT (occurrence: IT)
  Receive Date: 20190619
  Receipt Date: 20190619
  Transmission Date: 20190711
  Serious: Yes (Life-Threatening, Other)
  Sender: FDA-Public Use
  Company Number: IT-ACCORD-124674

PATIENT
  Age: 64 Year
  Sex: Female
  Weight: 69 kg

DRUGS (2)
  1. GEMCITABINA HIKMA [Suspect]
     Active Substance: GEMCITABINE HYDROCHLORIDE
     Indication: OVARIAN CANCER
     Dosage: 1 G POWDER FOR SOLUTION FOR INFUSION
     Route: 042
     Dates: start: 20190129
  2. CARBOPLATINO AHCL [Suspect]
     Active Substance: CARBOPLATIN
     Indication: OVARIAN CANCER
     Dosage: 10 MG/ML CONCENTRATO PER SOLUZIONE PER INFUSIONE
     Route: 042
     Dates: start: 20190129

REACTIONS (4)
  - Anaemia [Recovered/Resolved]
  - Dry skin [Recovered/Resolved]
  - Neutropenia [Recovered/Resolved]
  - Thrombocytopenia [Recovered/Resolved]

NARRATIVE: CASE EVENT DATE: 20190213
